FAERS Safety Report 26168675 (Version 1)
Quarter: 2025Q4

REPORT INFORMATION
  Report Type: Spontaneous
  Country: RU (occurrence: RU)
  Receive Date: 20251217
  Receipt Date: 20251217
  Transmission Date: 20260117
  Serious: Yes (Other)
  Sender: ALEXION PHARMACEUTICALS
  Company Number: RU-ASTRAZENECA-202512EAF011613RU

PATIENT
  Sex: Female
  Weight: 50 kg

DRUGS (3)
  1. TEZSPIRE [Suspect]
     Active Substance: TEZEPELUMAB-EKKO
     Dosage: 210 MILLIGRAM, Q4W
     Dates: start: 202506
  2. TEZSPIRE [Suspect]
     Active Substance: TEZEPELUMAB-EKKO
  3. BENRALIZUMAB [Suspect]
     Active Substance: BENRALIZUMAB
     Route: 065

REACTIONS (3)
  - Henoch-Schonlein purpura [Not Recovered/Not Resolved]
  - Urinary retention [Unknown]
  - Swelling face [Unknown]

NARRATIVE: CASE EVENT DATE: 20251212
